FAERS Safety Report 18691411 (Version 2)
Quarter: 2021Q1

REPORT INFORMATION
  Report Type: Spontaneous
  Country: US (occurrence: US)
  Receive Date: 20210101
  Receipt Date: 20210106
  Transmission Date: 20210419
  Serious: No
  Sender: FDA-Public Use
  Company Number: US-TEVA-2020-US-1865403

PATIENT
  Age: 59 Year
  Sex: Male

DRUGS (1)
  1. DESVENLAFAXINE ER [Suspect]
     Active Substance: DESVENLAFAXINE
     Route: 065

REACTIONS (1)
  - Drug ineffective [Unknown]
